FAERS Safety Report 10028728 (Version 3)
Quarter: 2014Q4

REPORT INFORMATION
  Report Type: Spontaneous
  Country: US (occurrence: US)
  Receive Date: 20140321
  Receipt Date: 20141119
  Transmission Date: 20150528
  Serious: No
  Sender: FDA-Public Use
  Company Number: US-VERTEX PHARMACEUTICALS INC-2014-001383

PATIENT
  Age: 11 Year
  Sex: Female
  Weight: 35 kg

DRUGS (12)
  1. RANITIDINE [Concomitant]
     Active Substance: RANITIDINE\RANITIDINE HYDROCHLORIDE
     Dosage: UNK
  2. SYMBICORT [Concomitant]
     Active Substance: BUDESONIDE\FORMOTEROL FUMARATE DIHYDRATE
     Indication: OBSTRUCTIVE AIRWAYS DISORDER
  3. MONTELUKAST [Concomitant]
     Active Substance: MONTELUKAST SODIUM
     Dosage: UNK
  4. IPRATROPIUM [Concomitant]
     Active Substance: IPRATROPIUM
     Indication: OBSTRUCTIVE AIRWAYS DISORDER
  5. PULMOZYME [Concomitant]
     Active Substance: DORNASE ALFA
     Indication: OBSTRUCTIVE AIRWAYS DISORDER
  6. ALBUTEROL. [Concomitant]
     Active Substance: ALBUTEROL
     Indication: OBSTRUCTIVE AIRWAYS DISORDER
  7. KALYDECO [Suspect]
     Active Substance: IVACAFTOR
     Indication: CYSTIC FIBROSIS
     Dosage: 150 MG, BID
     Route: 048
     Dates: start: 20120306
  8. ADEK VITAMINS [Concomitant]
     Dosage: UNK
  9. OMEPRAZOLE. [Concomitant]
     Active Substance: OMEPRAZOLE
     Dosage: UNK
  10. PANCREASE MT [Concomitant]
     Active Substance: PANCRELIPASE
     Dosage: UNK
  11. HYPER-SAL [Concomitant]
     Indication: OBSTRUCTIVE AIRWAYS DISORDER
  12. PULMICORT TURBUHALER [Concomitant]
     Active Substance: BUDESONIDE
     Indication: OBSTRUCTIVE AIRWAYS DISORDER

REACTIONS (4)
  - Bronchopulmonary aspergillosis [Recovered/Resolved]
  - Fungal infection [Not Recovered/Not Resolved]
  - Mycobacterium avium complex infection [Not Recovered/Not Resolved]
  - Nocardia test positive [Recovered/Resolved]

NARRATIVE: CASE EVENT DATE: 201312
